FAERS Safety Report 20717747 (Version 2)
Quarter: 2022Q2

REPORT INFORMATION
  Report Type: Report from Study
  Country: US (occurrence: US)
  Receive Date: 20220417
  Receipt Date: 20220603
  Transmission Date: 20220721
  Serious: No
  Sender: FDA-Public Use
  Company Number: US-BIOVITRUM-2022US04241

PATIENT
  Sex: Female

DRUGS (3)
  1. KINERET [Suspect]
     Active Substance: ANAKINRA
     Indication: Product used for unknown indication
     Route: 058
     Dates: start: 20220314, end: 20220518
  2. KINERET [Suspect]
     Active Substance: ANAKINRA
     Route: 058
     Dates: start: 20220314, end: 20220518
  3. DUPIXENT [Concomitant]
     Active Substance: DUPILUMAB

REACTIONS (9)
  - Injection site cellulitis [Unknown]
  - Pruritus [Recovered/Resolved]
  - Injection site bruising [Unknown]
  - Injection site pain [Unknown]
  - Injection site reaction [Unknown]
  - Injection site discolouration [Unknown]
  - Injection site warmth [Unknown]
  - Injection site inflammation [Unknown]
  - Product intolerance [Unknown]
